FAERS Safety Report 10060395 (Version 1)
Quarter: 2014Q2

REPORT INFORMATION
  Report Type: Spontaneous
  Country: GB (occurrence: GB)
  Receive Date: 20140404
  Receipt Date: 20140404
  Transmission Date: 20141212
  Serious: Yes (Disabling, Other)
  Sender: FDA-Public Use
  Company Number: GB-WATSON-2014-06272

PATIENT
  Age: 23 Year
  Sex: Female
  Weight: 81 kg

DRUGS (2)
  1. LAMOTRIGINE (UNKNOWN) [Suspect]
     Indication: BIPOLAR I DISORDER
     Dosage: 50 MG, UNKNOWN
     Route: 048
     Dates: start: 20140227, end: 20140306
  2. SERTRALINE [Concomitant]
     Indication: PRODUCT USED FOR UNKNOWN INDICATION
     Dosage: UNK
     Route: 065

REACTIONS (2)
  - Angioedema [Not Recovered/Not Resolved]
  - Urticaria [Not Recovered/Not Resolved]
